FAERS Safety Report 5082525-1 (Version None)
Quarter: 2006Q3

REPORT INFORMATION
  Report Type: 
  Country: None (occurrence: None)
  Receive Date: 20060817
  Receipt Date: 20060629
  Transmission Date: 20061208
  Serious: Yes (Other)
  Sender: FDA-Public Use
  Company Number: US-ROCHE-453667

PATIENT
  Age: 62 Year
  Sex: Male

DRUGS (2)
  1. PEGASYS [Suspect]
     Dosage: ROUTE REPORTED AS INJECTABLE.
     Route: 050
     Dates: start: 20060419
  2. COPEGUS [Suspect]
     Route: 048
     Dates: start: 20060419

REACTIONS (4)
  - FATIGUE [None]
  - IRRITABILITY [None]
  - PLATELET COUNT DECREASED [None]
  - RETINAL TEAR [None]
